FAERS Safety Report 25359585 (Version 1)
Quarter: 2025Q2

REPORT INFORMATION
  Report Type: Other
  Country: US (occurrence: US)
  Receive Date: 20250526
  Receipt Date: 20250526
  Transmission Date: 20250716
  Serious: Yes (Death, Other)
  Sender: MADRIGAL PHARMACEUTICALS
  Company Number: US-MADRIGAL PHARMACEUTICALS, INC-2025REZ5795

PATIENT

DRUGS (2)
  1. REZDIFFRA [Suspect]
     Active Substance: RESMETIROM
     Indication: Colitis microscopic
     Dosage: 80 MILLIGRAM, QD
     Route: 048
     Dates: start: 202407
  2. DUPIXENT [Concomitant]
     Active Substance: DUPILUMAB

REACTIONS (2)
  - Death [Fatal]
  - Product use in unapproved indication [Unknown]

NARRATIVE: CASE EVENT DATE: 20240701
